FAERS Safety Report 21576772 (Version 1)
Quarter: 2022Q4

REPORT INFORMATION
  Report Type: Spontaneous
  Country: US (occurrence: None)
  Receive Date: 20221109
  Receipt Date: 20221109
  Transmission Date: 20230112
  Serious: Yes (Other)
  Sender: FDA-Public Use
  Company Number: None

PATIENT
  Age: 39 Year
  Sex: Female
  Weight: 93 kg

DRUGS (1)
  1. KEYTRUDA [Suspect]
     Active Substance: PEMBROLIZUMAB
     Indication: Breast cancer
     Dosage: FREQUENCY : EVERY THREE WEEKS;?
     Dates: start: 20220111, end: 20220413

REACTIONS (9)
  - Colitis [None]
  - Arthralgia [None]
  - Joint swelling [None]
  - Rheumatoid arthritis [None]
  - Dry eye [None]
  - Sjogren^s syndrome [None]
  - Lacrimation decreased [None]
  - Laryngitis [None]
  - Swelling [None]
